FAERS Safety Report 6979968-5 (Version None)
Quarter: 2010Q3

REPORT INFORMATION
  Report Type: 
  Country: None (occurrence: None)
  Receive Date: 20100914
  Receipt Date: 20100902
  Transmission Date: 20110219
  Serious: Yes (Hospitalization, Other)
  Sender: FDA-Public Use
  Company Number: US-BAYER-201033254NA

PATIENT
  Age: 29 Year
  Sex: Female
  Weight: 77 kg

DRUGS (9)
  1. YAZ [Suspect]
     Indication: ORAL CONTRACEPTION
     Route: 048
     Dates: start: 20070701, end: 20080801
  2. YAZ [Suspect]
     Route: 048
     Dates: start: 20060101
  3. ORTHO TRI-CYCLEN [Concomitant]
     Indication: ORAL CONTRACEPTION
     Route: 048
     Dates: start: 20030101, end: 20040101
  4. ORTHO TRI-CYCLEN [Concomitant]
     Route: 048
     Dates: end: 20070701
  5. VICODIN [Concomitant]
  6. BENTYL [Concomitant]
  7. LEVOXYL [Concomitant]
  8. SYNTHROID [Concomitant]
  9. IBUPROFEN [Concomitant]

REACTIONS (7)
  - ABDOMINAL DISCOMFORT [None]
  - ABDOMINAL PAIN [None]
  - CHOLECYSTITIS CHRONIC [None]
  - DIARRHOEA [None]
  - GALLBLADDER CHOLESTEROLOSIS [None]
  - NAUSEA [None]
  - VOMITING [None]
